FAERS Safety Report 23847359 (Version 1)
Quarter: 2024Q2

REPORT INFORMATION
  Report Type: Spontaneous
  Country: ES (occurrence: ES)
  Receive Date: 20240513
  Receipt Date: 20240513
  Transmission Date: 20240716
  Serious: Yes (Hospitalization)
  Sender: FDA-Public Use
  Company Number: None

PATIENT
  Age: 57 Year
  Sex: Male

DRUGS (12)
  1. QUETIAPINE [Suspect]
     Active Substance: QUETIAPINE
     Indication: Depression
     Dosage: 0-0-2
     Route: 048
     Dates: start: 20240208, end: 20240308
  2. CLONAZEPAM [Suspect]
     Active Substance: CLONAZEPAM
     Indication: Depression
     Dosage: RIVOTRIL 2MG 60 TABLETS, 2 MG ORAL TABLETS CHRONICA 1 BREAKFAST
     Route: 048
     Dates: start: 20240213
  3. AMLODIPINE [Suspect]
     Active Substance: AMLODIPINE BESYLATE
     Indication: Hypertension
     Dosage: AMLODIPINO 10 MG 0-0-1.
     Route: 048
     Dates: start: 20230525
  4. HYDROCHLOROTHIAZIDE\VALSARTAN [Suspect]
     Active Substance: HYDROCHLOROTHIAZIDE\VALSARTAN
     Indication: Hypertension
     Dosage: VALSART?N/HCT 160/25 MG 1-0-0
     Route: 048
     Dates: start: 20240102
  5. BISOPROLOL [Suspect]
     Active Substance: BISOPROLOL\BISOPROLOL FUMARATE
     Indication: Hypertension
     Dosage: 1 EVERY 24 HOURS
     Route: 048
     Dates: start: 20240111
  6. SULPIRIDE [Suspect]
     Active Substance: SULPIRIDE
     Indication: Vertigo positional
     Route: 048
     Dates: start: 20240301, end: 20240308
  7. Merformin [Concomitant]
     Dosage: 1-0-1
  8. SIMVASTATIN [Concomitant]
     Active Substance: SIMVASTATIN
  9. ASPIRIN [Concomitant]
     Active Substance: ASPIRIN
  10. OMEPRAZOLE [Concomitant]
     Active Substance: DONEPEZIL HYDROCHLORIDE\OMEPRAZOLE\OMEPRAZOLE MAGNESIUM
  11. ESCITALOPRAM [Concomitant]
     Active Substance: ESCITALOPRAM OXALATE
  12. PREDNISONE [Concomitant]
     Active Substance: PREDNISONE
     Indication: Neck pain

REACTIONS (3)
  - Syncope [Recovered/Resolved]
  - Vertigo positional [Unknown]
  - Mood swings [Unknown]

NARRATIVE: CASE EVENT DATE: 20240308
